FAERS Safety Report 8116396-3 (Version None)
Quarter: 2012Q1

REPORT INFORMATION
  Report Type: 
  Country: None (occurrence: None)
  Receive Date: 20120206
  Receipt Date: 20120125
  Transmission Date: 20120608
  Serious: Yes (Hospitalization)
  Sender: FDA-Public Use
  Company Number: US-MEDIMMUNE-MEDI-0014463

PATIENT
  Sex: Male

DRUGS (9)
  1. ALBUTEROL [Concomitant]
  2. ACTIGALL [Concomitant]
  3. CIPROFLOXACIN [Concomitant]
     Indication: INFECTION PROPHYLAXIS
  4. SYNAGIS [Suspect]
     Route: 030
     Dates: start: 20120106, end: 20120106
  5. TACROLIMUS [Concomitant]
  6. MEPRON [Concomitant]
  7. VALCYTE [Concomitant]
  8. NYSTATIN [Concomitant]
     Indication: PROPHYLAXIS
  9. SYNAGIS [Suspect]
     Route: 030
     Dates: start: 20111209, end: 20111209

REACTIONS (2)
  - HEPATIC ENZYME INCREASED [None]
  - BLOOD BICARBONATE DECREASED [None]
